FAERS Safety Report 25725045 (Version 1)
Quarter: 2025Q3

REPORT INFORMATION
  Report Type: Spontaneous
  Country: EU (occurrence: EU)
  Receive Date: 20250826
  Receipt Date: 20250826
  Transmission Date: 20251021
  Serious: Yes (Other)
  Sender: ALKEM
  Company Number: EU-ALKEM LABORATORIES LIMITED-FR-ALKEM-2025-02448

PATIENT
  Age: 35 Year
  Sex: Male

DRUGS (6)
  1. PREGABALIN [Suspect]
     Active Substance: PREGABALIN
     Indication: Product used for unknown indication
     Route: 065
  2. PREGABALIN [Suspect]
     Active Substance: PREGABALIN
     Dosage: 1200 MILLIGRAM, QD (GRADUALLY REACHED)
     Route: 065
  3. PREGABALIN [Suspect]
     Active Substance: PREGABALIN
     Dosage: 600 MILLIGRAM, QD
     Route: 065
  4. PREGABALIN [Suspect]
     Active Substance: PREGABALIN
     Dosage: 900 MILLIGRAM, QD
     Route: 065
  5. DIAZEPAM [Concomitant]
     Active Substance: DIAZEPAM
     Indication: Product used for unknown indication
     Dosage: 30 MILLIGRAM, QD (IMMEDIATE DOSE)
     Route: 065
  6. PALIPERIDONE [Concomitant]
     Active Substance: PALIPERIDONE
     Indication: Schizophrenia
     Route: 065

REACTIONS (6)
  - Drug use disorder [Unknown]
  - Drug dependence [Recovering/Resolving]
  - Hallucination [Unknown]
  - Confusional state [Unknown]
  - Emotional distress [Unknown]
  - Prescription drug used without a prescription [Unknown]
